FAERS Safety Report 4613748-0 (Version None)
Quarter: 2005Q1

REPORT INFORMATION
  Report Type: 
  Country: None (occurrence: None)
  Receive Date: 20050321
  Receipt Date: 20040831
  Transmission Date: 20050727
  Serious: Yes (Hospitalization)
  Sender: FDA-Public Use
  Company Number: US-MERCK-0409USA00119B1

PATIENT
  Sex: Female
  Weight: 3 kg

DRUGS (5)
  1. SINGULAIR [Suspect]
     Indication: ASTHMA
     Dates: end: 20030901
  2. SINGULAIR [Suspect]
     Dates: start: 20040330
  3. SINGULAIR [Suspect]
     Indication: HYPERSENSITIVITY
     Dates: end: 20030901
  4. SINGULAIR [Suspect]
     Dates: start: 20040330
  5. PULMICORT [Concomitant]

REACTIONS (5)
  - COLLAPSE OF LUNG [None]
  - DRUG EXPOSURE DURING PREGNANCY [None]
  - EAR DISORDER [None]
  - NEONATAL ASPIRATION [None]
  - POSTMATURE BABY [None]
